FAERS Safety Report 23508521 (Version 4)
Quarter: 2024Q3

REPORT INFORMATION
  Report Type: Spontaneous
  Country: BE (occurrence: BE)
  Receive Date: 20240209
  Receipt Date: 20240724
  Transmission Date: 20241016
  Serious: Yes (Hospitalization, Other)
  Sender: SANDOZ
  Company Number: BE-ROCHE-2882515

PATIENT
  Age: 73 Year
  Sex: Female
  Weight: 79.1 kg

DRUGS (151)
  1. ATEZOLIZUMAB [Suspect]
     Active Substance: ATEZOLIZUMAB
     Indication: Small cell lung cancer extensive stage
     Dosage: 1200 MG, (RECEIVED BEFORE SIGNING THE INFORMED CONSENT)
     Route: 042
     Dates: start: 20210715
  2. ATEZOLIZUMAB [Suspect]
     Active Substance: ATEZOLIZUMAB
     Dosage: 1200 MG, (VISIT 1)
     Route: 042
     Dates: start: 20210804
  3. ATEZOLIZUMAB [Suspect]
     Active Substance: ATEZOLIZUMAB
     Indication: Non-small cell lung cancer
     Dosage: UNK
     Route: 041
  4. CARBOPLATIN [Suspect]
     Active Substance: CARBOPLATIN
     Dosage: 351 MG
     Route: 065
     Dates: start: 20210804
  5. CARBOPLATIN [Suspect]
     Active Substance: CARBOPLATIN
     Indication: Small cell lung cancer extensive stage
     Dosage: 375 MG
     Route: 065
     Dates: start: 20210715
  6. CARBOPLATIN [Suspect]
     Active Substance: CARBOPLATIN
     Indication: Non-small cell lung cancer
     Dosage: UNK
     Route: 065
     Dates: start: 20230330
  7. ETOPOSIDE [Suspect]
     Active Substance: ETOPOSIDE
     Indication: Small cell lung cancer extensive stage
     Dosage: 194 MG
     Route: 042
     Dates: start: 20210715
  8. ETOPOSIDE [Suspect]
     Active Substance: ETOPOSIDE
     Dosage: 196 MG
     Route: 042
     Dates: start: 20210804
  9. ETOPOSIDE [Suspect]
     Active Substance: ETOPOSIDE
     Indication: Non-small cell lung cancer
     Dosage: UNK
     Route: 048
     Dates: start: 20210728
  10. AKYNZEO [Concomitant]
     Indication: Product used for unknown indication
     Dosage: UNK, QMO
     Route: 065
     Dates: start: 20210715, end: 20210915
  11. AKYNZEO [Concomitant]
     Dosage: UNK
     Route: 065
     Dates: start: 20210715, end: 20210915
  12. AKYNZEO [Concomitant]
     Route: 065
     Dates: start: 20210715, end: 20210915
  13. AKYNZEO [Concomitant]
     Route: 065
     Dates: start: 20210715, end: 20210915
  14. ENALAPRIL MALEATE [Concomitant]
     Active Substance: ENALAPRIL MALEATE
     Indication: Product used for unknown indication
     Route: 065
     Dates: start: 20230330
  15. ENALAPRIL MALEATE [Concomitant]
     Active Substance: ENALAPRIL MALEATE
     Route: 065
     Dates: start: 20230330
  16. ENALAPRIL MALEATE [Concomitant]
     Active Substance: ENALAPRIL MALEATE
     Route: 065
     Dates: start: 20230330
  17. ENALAPRIL MALEATE [Concomitant]
     Active Substance: ENALAPRIL MALEATE
     Route: 065
     Dates: start: 20230330
  18. ALDACTONE [Concomitant]
     Active Substance: SPIRONOLACTONE
     Dosage: QD
     Route: 065
     Dates: start: 20230330
  19. ALDACTONE [Concomitant]
     Active Substance: SPIRONOLACTONE
     Indication: Product used for unknown indication
     Dosage: UNK UNK, QD
     Route: 065
     Dates: start: 20230330
  20. AMOCLANE [Concomitant]
     Indication: Product used for unknown indication
     Dosage: QD
     Route: 065
     Dates: start: 20210728
  21. AMOCLANE [Concomitant]
     Dosage: QD
     Route: 065
     Dates: start: 20210728
  22. AMOCLANE [Concomitant]
     Dosage: QD
     Route: 065
     Dates: start: 20210728
  23. AMOCLANE [Concomitant]
     Dosage: QD
     Route: 065
     Dates: start: 20210728
  24. ASPIRIN [Concomitant]
     Active Substance: ASPIRIN
     Indication: Product used for unknown indication
     Dosage: QD
     Route: 065
     Dates: start: 20210927, end: 20210927
  25. ASPIRIN [Concomitant]
     Active Substance: ASPIRIN
     Dosage: QD
     Route: 065
     Dates: start: 20210927, end: 20210927
  26. ASPIRIN [Concomitant]
     Active Substance: ASPIRIN
     Dosage: QD
     Route: 065
     Dates: start: 20210927, end: 20210927
  27. ASPIRIN [Concomitant]
     Active Substance: ASPIRIN
     Dosage: QD
     Route: 065
     Dates: start: 20210927, end: 20210927
  28. AVELOX [Concomitant]
     Active Substance: MOXIFLOXACIN HYDROCHLORIDE
     Dosage: QD
     Route: 065
     Dates: start: 20211117, end: 20211121
  29. AVELOX [Concomitant]
     Active Substance: MOXIFLOXACIN HYDROCHLORIDE
     Dosage: QD
     Route: 065
     Dates: start: 20211117, end: 20211121
  30. AVELOX [Concomitant]
     Active Substance: MOXIFLOXACIN HYDROCHLORIDE
     Dosage: QD
     Route: 065
     Dates: start: 20211117, end: 20211121
  31. AVELOX [Concomitant]
     Active Substance: MOXIFLOXACIN HYDROCHLORIDE
     Indication: Product used for unknown indication
     Dosage: UNK UNK, QD
     Route: 065
     Dates: start: 20211117, end: 20211121
  32. BILASTINE [Concomitant]
     Active Substance: BILASTINE
     Dosage: QD
     Route: 065
     Dates: start: 202110, end: 202306
  33. BILASTINE [Concomitant]
     Active Substance: BILASTINE
     Dosage: QD
     Route: 065
     Dates: start: 202110, end: 202306
  34. BILASTINE [Concomitant]
     Active Substance: BILASTINE
     Dosage: QD
     Route: 065
     Dates: start: 202110, end: 202306
  35. BILASTINE [Concomitant]
     Active Substance: BILASTINE
     Dosage: UNK UNK, QD
     Route: 065
     Dates: start: 202110, end: 202306
  36. BILASTINE [Concomitant]
     Active Substance: BILASTINE
     Indication: Prophylaxis
     Dosage: UNK
     Route: 065
     Dates: start: 20210916, end: 202109
  37. BISOPROLOL [Concomitant]
     Active Substance: BISOPROLOL\BISOPROLOL FUMARATE
     Dosage: QD
     Route: 065
  38. BISOPROLOL [Concomitant]
     Active Substance: BISOPROLOL\BISOPROLOL FUMARATE
     Dosage: QD
     Route: 065
  39. BISOPROLOL [Concomitant]
     Active Substance: BISOPROLOL\BISOPROLOL FUMARATE
     Dosage: QD
     Route: 065
  40. BISOPROLOL [Concomitant]
     Active Substance: BISOPROLOL\BISOPROLOL FUMARATE
     Indication: Product used for unknown indication
     Dosage: UNK, QD
     Route: 065
  41. CARVEDILOL [Concomitant]
     Active Substance: CARVEDILOL
     Dosage: UNK
     Route: 065
     Dates: start: 20230330
  42. CARVEDILOL [Concomitant]
     Active Substance: CARVEDILOL
     Dosage: UNK
     Route: 065
     Dates: start: 20230330
  43. CARVEDILOL [Concomitant]
     Active Substance: CARVEDILOL
     Dosage: UNK
     Route: 065
     Dates: start: 20230330
  44. CARVEDILOL [Concomitant]
     Active Substance: CARVEDILOL
     Dosage: UNK
     Route: 065
     Dates: start: 20230330
  45. CARVEDILOL [Concomitant]
     Active Substance: CARVEDILOL
     Dosage: UNK
     Route: 065
     Dates: start: 20230330
  46. CARVEDILOL [Concomitant]
     Active Substance: CARVEDILOL
     Dosage: UNK
     Route: 065
     Dates: start: 20230330
  47. CARVEDILOL [Concomitant]
     Active Substance: CARVEDILOL
     Dosage: UNK
     Route: 065
     Dates: start: 20230330
  48. CARVEDILOL [Concomitant]
     Active Substance: CARVEDILOL
     Dosage: UNK
     Route: 065
     Dates: start: 20230330
  49. CARVEDILOL [Concomitant]
     Active Substance: CARVEDILOL
     Indication: Product used for unknown indication
     Dosage: UNK, (0.5 DAY)
     Route: 065
     Dates: start: 20230330
  50. CARVEDILOL [Concomitant]
     Active Substance: CARVEDILOL
     Route: 065
     Dates: start: 20230330
  51. CARVEDILOL [Concomitant]
     Active Substance: CARVEDILOL
     Route: 065
     Dates: start: 20230330
  52. 3M CAVILON ANTIFUNGAL [Concomitant]
     Active Substance: MICONAZOLE NITRATE
     Dosage: QD
     Route: 065
     Dates: start: 20210916, end: 202109
  53. 3M CAVILON ANTIFUNGAL [Concomitant]
     Active Substance: MICONAZOLE NITRATE
     Dosage: QD
     Route: 065
     Dates: start: 20210916, end: 202109
  54. 3M CAVILON ANTIFUNGAL [Concomitant]
     Active Substance: MICONAZOLE NITRATE
     Dosage: QD
     Route: 065
     Dates: start: 20210916, end: 202109
  55. 3M CAVILON ANTIFUNGAL [Concomitant]
     Active Substance: MICONAZOLE NITRATE
     Dosage: QD
     Route: 065
     Dates: start: 20210916, end: 202109
  56. 3M CAVILON ANTIFUNGAL [Concomitant]
     Active Substance: MICONAZOLE NITRATE
     Dosage: QD
     Route: 065
     Dates: start: 20210916, end: 202109
  57. 3M CAVILON ANTIFUNGAL [Concomitant]
     Active Substance: MICONAZOLE NITRATE
     Dosage: QD
     Route: 065
     Dates: start: 20210916, end: 202109
  58. 3M CAVILON ANTIFUNGAL [Concomitant]
     Active Substance: MICONAZOLE NITRATE
     Dosage: QD
     Route: 065
     Dates: start: 20210916, end: 202109
  59. 3M CAVILON ANTIFUNGAL [Concomitant]
     Active Substance: MICONAZOLE NITRATE
     Dosage: QD
     Route: 065
     Dates: start: 20210916, end: 202109
  60. 3M CAVILON ANTIFUNGAL [Concomitant]
     Active Substance: MICONAZOLE NITRATE
     Dosage: QD
     Route: 065
     Dates: start: 20210916, end: 202109
  61. 3M CAVILON ANTIFUNGAL [Concomitant]
     Active Substance: MICONAZOLE NITRATE
     Indication: Product used for unknown indication
     Dosage: UNK, QD
     Route: 065
     Dates: start: 20210916, end: 202109
  62. CEFTAZIDIME [Concomitant]
     Active Substance: CEFTAZIDIME
     Dosage: QD
     Route: 065
     Dates: start: 20210726, end: 20210728
  63. CEFTAZIDIME [Concomitant]
     Active Substance: CEFTAZIDIME
     Dosage: QD
     Route: 065
     Dates: start: 20210726, end: 20210728
  64. CEFTAZIDIME [Concomitant]
     Active Substance: CEFTAZIDIME
     Dosage: QD
     Route: 065
     Dates: start: 20210726, end: 20210728
  65. CEFTAZIDIME [Concomitant]
     Active Substance: CEFTAZIDIME
     Indication: Product used for unknown indication
     Dosage: UNK, QD
     Route: 065
     Dates: start: 20210726, end: 20210728
  66. SODIUM CHLORIDE [Concomitant]
     Active Substance: SODIUM CHLORIDE
     Indication: Product used for unknown indication
     Dosage: QD
     Route: 065
     Dates: start: 20210729, end: 20210730
  67. PERINDOPRIL [Concomitant]
     Active Substance: PERINDOPRIL
     Dosage: QD
     Route: 065
  68. PERINDOPRIL [Concomitant]
     Active Substance: PERINDOPRIL
     Dosage: QD
     Route: 065
  69. PERINDOPRIL [Concomitant]
     Active Substance: PERINDOPRIL
     Indication: Product used for unknown indication
     Dosage: UNK, QD
     Route: 065
  70. ENALAPRIL [Concomitant]
     Active Substance: ENALAPRIL
     Dosage: UNK
     Route: 065
     Dates: start: 20230330
  71. ENALAPRIL [Concomitant]
     Active Substance: ENALAPRIL
     Indication: Product used for unknown indication
     Dosage: UNK, (0.5 DAY)
     Route: 065
     Dates: start: 20230330
  72. ENALAPRIL [Concomitant]
     Active Substance: ENALAPRIL
     Route: 065
     Dates: start: 20230330
  73. ENALAPRIL [Concomitant]
     Active Substance: ENALAPRIL
     Route: 065
     Dates: start: 20230330
  74. FUROSEMIDE [Concomitant]
     Active Substance: FUROSEMIDE
     Dosage: QD
     Route: 065
  75. FUROSEMIDE [Concomitant]
     Active Substance: FUROSEMIDE
     Dosage: QD
     Route: 065
  76. FUROSEMIDE [Concomitant]
     Active Substance: FUROSEMIDE
     Dosage: QD
     Route: 065
  77. FUROSEMIDE [Concomitant]
     Active Substance: FUROSEMIDE
     Indication: Product used for unknown indication
     Dosage: UNK UNK, QD
     Route: 065
  78. CEFTAZIDIME [Concomitant]
     Active Substance: CEFTAZIDIME
     Indication: Product used for unknown indication
     Dosage: QD
     Route: 065
     Dates: start: 20210726, end: 20210728
  79. BECLOMETHASONE DIPROPIONATE\FORMOTEROL FUMARATE [Concomitant]
     Active Substance: BECLOMETHASONE DIPROPIONATE\FORMOTEROL FUMARATE
     Dosage: UNK
     Route: 065
     Dates: start: 20210725
  80. BECLOMETHASONE DIPROPIONATE\FORMOTEROL FUMARATE [Concomitant]
     Active Substance: BECLOMETHASONE DIPROPIONATE\FORMOTEROL FUMARATE
     Dosage: UNK
     Route: 065
     Dates: start: 20210725
  81. BECLOMETHASONE DIPROPIONATE\FORMOTEROL FUMARATE [Concomitant]
     Active Substance: BECLOMETHASONE DIPROPIONATE\FORMOTEROL FUMARATE
     Dosage: UNK, 2X/DAY
     Route: 065
     Dates: start: 20210715
  82. BECLOMETHASONE DIPROPIONATE\FORMOTEROL FUMARATE [Concomitant]
     Active Substance: BECLOMETHASONE DIPROPIONATE\FORMOTEROL FUMARATE
     Indication: Product used for unknown indication
     Dosage: UNK,0.5 DAY
     Route: 065
  83. BECLOMETHASONE DIPROPIONATE\FORMOTEROL FUMARATE [Concomitant]
     Active Substance: BECLOMETHASONE DIPROPIONATE\FORMOTEROL FUMARATE
     Route: 065
     Dates: start: 20210725
  84. BECLOMETHASONE DIPROPIONATE\FORMOTEROL FUMARATE [Concomitant]
     Active Substance: BECLOMETHASONE DIPROPIONATE\FORMOTEROL FUMARATE
     Route: 065
     Dates: start: 20210725
  85. POTASSIUM CHLORIDE [Concomitant]
     Active Substance: POTASSIUM CHLORIDE
     Indication: Product used for unknown indication
     Dosage: QD
     Route: 065
     Dates: start: 20210729, end: 20210730
  86. LASIX [Concomitant]
     Active Substance: FUROSEMIDE
     Indication: Product used for unknown indication
     Dosage: QD
     Route: 065
  87. POLYETHYLENE GLYCOL 3350\POTASSIUM CHLORIDE\SODIUM BICARBONATE\SODIUM [Concomitant]
     Active Substance: POLYETHYLENE GLYCOL 3350\POTASSIUM CHLORIDE\SODIUM BICARBONATE\SODIUM CHLORIDE
     Indication: Product used for unknown indication
     Dosage: UNK, QD
     Route: 065
  88. ALIZAPRIDE HYDROCHLORIDE [Concomitant]
     Active Substance: ALIZAPRIDE HYDROCHLORIDE
     Indication: Product used for unknown indication
     Dosage: UNK
     Route: 065
     Dates: start: 20210717, end: 20210717
  89. ALIZAPRIDE HYDROCHLORIDE [Concomitant]
     Active Substance: ALIZAPRIDE HYDROCHLORIDE
     Route: 065
     Dates: start: 20210717, end: 20210717
  90. ALIZAPRIDE HYDROCHLORIDE [Concomitant]
     Active Substance: ALIZAPRIDE HYDROCHLORIDE
     Route: 065
     Dates: start: 20210717, end: 20210717
  91. ALIZAPRIDE HYDROCHLORIDE [Concomitant]
     Active Substance: ALIZAPRIDE HYDROCHLORIDE
     Route: 065
     Dates: start: 20210717, end: 20210717
  92. Magnecaps energy [Concomitant]
     Indication: Product used for unknown indication
     Dosage: QD
     Route: 065
     Dates: start: 20210716, end: 20210925
  93. MAGNESIUM [Concomitant]
     Active Substance: MAGNESIUM
     Dosage: QD
     Route: 065
     Dates: start: 20210716, end: 20210925
  94. MAGNESIUM [Concomitant]
     Active Substance: MAGNESIUM
     Dosage: QD
     Route: 065
     Dates: start: 20210716, end: 20210925
  95. MAGNESIUM [Concomitant]
     Active Substance: MAGNESIUM
     Dosage: QD
     Route: 065
     Dates: start: 20210716, end: 20210925
  96. MAGNESIUM [Concomitant]
     Active Substance: MAGNESIUM
     Indication: Product used for unknown indication
     Dosage: UNK, QD
     Route: 065
     Dates: start: 20210716, end: 20210925
  97. METHYLPREDNISOLONE [Concomitant]
     Active Substance: METHYLPREDNISOLONE
     Indication: Product used for unknown indication
     Dosage: UNK, MONTHLY
     Route: 065
     Dates: start: 20210715, end: 20210915
  98. NEULASTA [Concomitant]
     Active Substance: PEGFILGRASTIM
     Indication: Product used for unknown indication
     Dosage: UNK
     Route: 065
     Dates: start: 20210719, end: 20210917
  99. NEULASTA [Concomitant]
     Active Substance: PEGFILGRASTIM
     Dosage: UNK
     Route: 065
     Dates: start: 20210719, end: 20210917
  100. NEULASTA [Concomitant]
     Active Substance: PEGFILGRASTIM
     Route: 065
     Dates: start: 20210719, end: 20210917
  101. NEULASTA [Concomitant]
     Active Substance: PEGFILGRASTIM
     Route: 065
     Dates: start: 20210719, end: 20210917
  102. ELECTROLYTES NOS [Concomitant]
     Active Substance: ELECTROLYTES NOS
     Indication: Product used for unknown indication
     Dosage: UNK
     Route: 065
  103. PLASMALYTE A [Concomitant]
     Dosage: QD
     Route: 065
     Dates: start: 20210726, end: 20210727
  104. PLASMALYTE A [Concomitant]
     Dosage: QD
     Route: 065
     Dates: start: 20210726, end: 20210727
  105. PLASMALYTE A [Concomitant]
     Dosage: QD
     Route: 065
     Dates: start: 20210726, end: 20210727
  106. PLASMALYTE A [Concomitant]
     Dosage: QD
     Route: 065
     Dates: start: 20210726, end: 20210727
  107. PLASMALYTE A [Concomitant]
     Dosage: QD
     Route: 065
     Dates: start: 20210726, end: 20210727
  108. PLASMALYTE A [Concomitant]
     Dosage: QD
     Route: 065
     Dates: start: 20210726, end: 20210727
  109. PLASMALYTE A [Concomitant]
     Dosage: QD
     Route: 065
     Dates: start: 20210726, end: 20210727
  110. PLASMALYTE A [Concomitant]
     Dosage: QD
     Route: 065
     Dates: start: 20210726, end: 20210727
  111. PLASMALYTE A [Concomitant]
     Indication: Product used for unknown indication
     Dosage: UNK, QD
     Route: 065
     Dates: start: 20210726, end: 20210727
  112. POTASSIUM CHLORIDE [Concomitant]
     Active Substance: POTASSIUM CHLORIDE
     Dosage: QD
     Route: 065
     Dates: start: 20210729, end: 20210730
  113. POTASSIUM CHLORIDE [Concomitant]
     Active Substance: POTASSIUM CHLORIDE
     Dosage: QD
     Route: 065
     Dates: start: 20210729, end: 20210730
  114. POTASSIUM CHLORIDE [Concomitant]
     Active Substance: POTASSIUM CHLORIDE
     Dosage: QD
     Route: 065
     Dates: start: 20210729, end: 20210730
  115. POTASSIUM CHLORIDE [Concomitant]
     Active Substance: POTASSIUM CHLORIDE
     Indication: Product used for unknown indication
     Dosage: UNK, QD
     Route: 065
     Dates: start: 20210729, end: 20210730
  116. POTASSIUM CHLORIDE [Concomitant]
     Active Substance: POTASSIUM CHLORIDE
     Dosage: UNK
     Route: 065
     Dates: start: 20210716, end: 20210925
  117. PRAVASTATIN [Concomitant]
     Active Substance: PRAVASTATIN
     Dosage: QD
     Route: 065
  118. PRAVASTATIN [Concomitant]
     Active Substance: PRAVASTATIN
     Indication: Product used for unknown indication
     Dosage: UNK UNK, QD
     Route: 065
  119. PERINDOPRIL [Concomitant]
     Active Substance: PERINDOPRIL
     Indication: Product used for unknown indication
     Dosage: QD
     Route: 065
  120. PERINDOPRIL [Concomitant]
     Active Substance: PERINDOPRIL
     Dosage: QD
     Route: 065
  121. PERINDOPRIL [Concomitant]
     Active Substance: PERINDOPRIL
     Dosage: QD
     Route: 065
  122. PERINDOPRIL [Concomitant]
     Active Substance: PERINDOPRIL
     Dosage: QD
     Route: 065
  123. SODIUM CHLORIDE [Concomitant]
     Active Substance: SODIUM CHLORIDE
     Dosage: QD
     Route: 065
     Dates: start: 20210726, end: 20210727
  124. SODIUM CHLORIDE [Concomitant]
     Active Substance: SODIUM CHLORIDE
     Dosage: QD
     Route: 065
  125. SODIUM CHLORIDE [Concomitant]
     Active Substance: SODIUM CHLORIDE
     Dosage: QD
     Route: 065
  126. SODIUM CHLORIDE [Concomitant]
     Active Substance: SODIUM CHLORIDE
     Indication: Product used for unknown indication
     Dosage: UNK, QD
     Route: 065
     Dates: start: 20210729, end: 20210730
  127. SODIUM CHLORIDE [Concomitant]
     Active Substance: SODIUM CHLORIDE
     Dosage: UNK
     Route: 065
  128. LEVOFLOXACIN [Concomitant]
     Active Substance: LEVOFLOXACIN
     Dosage: QD
     Route: 065
     Dates: start: 20210723, end: 20210726
  129. LEVOFLOXACIN [Concomitant]
     Active Substance: LEVOFLOXACIN
     Dosage: QD
     Route: 065
     Dates: start: 20210723, end: 20210726
  130. LEVOFLOXACIN [Concomitant]
     Active Substance: LEVOFLOXACIN
     Dosage: QD
     Route: 065
     Dates: start: 20210723, end: 20210726
  131. LEVOFLOXACIN [Concomitant]
     Active Substance: LEVOFLOXACIN
     Indication: Product used for unknown indication
     Dosage: UNK, QD
     Route: 065
     Dates: start: 20210723, end: 20210726
  132. ULTRA K [Concomitant]
     Dosage: QD
     Route: 065
     Dates: start: 20210728
  133. ULTRA K [Concomitant]
     Dosage: QD
     Route: 065
     Dates: start: 20210728
  134. ULTRA K [Concomitant]
     Dosage: QD
     Route: 065
     Dates: start: 20210728
  135. ULTRA K [Concomitant]
     Indication: Product used for unknown indication
     Dosage: UNK, QD
     Route: 065
     Dates: start: 20210728
  136. CHOLECALCIFEROL [Concomitant]
     Active Substance: CHOLECALCIFEROL
     Dosage: QD
     Route: 065
     Dates: start: 20210716
  137. CHOLECALCIFEROL [Concomitant]
     Active Substance: CHOLECALCIFEROL
     Dosage: QD
     Route: 065
     Dates: start: 20210716
  138. CHOLECALCIFEROL [Concomitant]
     Active Substance: CHOLECALCIFEROL
     Dosage: QD
     Route: 065
     Dates: start: 20210716
  139. CHOLECALCIFEROL [Concomitant]
     Active Substance: CHOLECALCIFEROL
     Dosage: QD
     Route: 065
     Dates: start: 20210716
  140. CHOLECALCIFEROL [Concomitant]
     Active Substance: CHOLECALCIFEROL
     Dosage: QD
     Route: 065
     Dates: start: 20210716
  141. CHOLECALCIFEROL [Concomitant]
     Active Substance: CHOLECALCIFEROL
     Dosage: QD
     Route: 065
     Dates: start: 20210716
  142. CHOLECALCIFEROL [Concomitant]
     Active Substance: CHOLECALCIFEROL
     Dosage: QD
     Route: 065
     Dates: start: 20210716
  143. CHOLECALCIFEROL [Concomitant]
     Active Substance: CHOLECALCIFEROL
     Dosage: QD
     Route: 065
     Dates: start: 20210716
  144. CHOLECALCIFEROL [Concomitant]
     Active Substance: CHOLECALCIFEROL
     Dosage: QD
     Route: 065
     Dates: start: 20210716
  145. CHOLECALCIFEROL [Concomitant]
     Active Substance: CHOLECALCIFEROL
     Dosage: QD
     Route: 065
     Dates: start: 20210716
  146. CHOLECALCIFEROL [Concomitant]
     Active Substance: CHOLECALCIFEROL
     Indication: Product used for unknown indication
     Dosage: UNK, QD
     Route: 065
  147. CHOLECALCIFEROL [Concomitant]
     Active Substance: CHOLECALCIFEROL
     Dosage: UNK, QD
     Route: 065
     Dates: start: 20210716
  148. ZOCOR [Concomitant]
     Active Substance: SIMVASTATIN
     Dosage: QD
     Route: 065
     Dates: start: 20210804
  149. ZOCOR [Concomitant]
     Active Substance: SIMVASTATIN
     Dosage: QD
     Route: 065
     Dates: start: 20210804
  150. ZOCOR [Concomitant]
     Active Substance: SIMVASTATIN
     Dosage: QD
     Route: 065
     Dates: start: 20210804
  151. ZOCOR [Concomitant]
     Active Substance: SIMVASTATIN
     Indication: Product used for unknown indication
     Dosage: UNK UNK, QD
     Route: 065
     Dates: start: 20210804

REACTIONS (14)
  - Neutropenia [Recovered/Resolved]
  - Inflammation [Recovered/Resolved]
  - Neutropenia [Recovered/Resolved]
  - Hypokalaemia [Recovered/Resolved]
  - Hypokalaemia [Recovered/Resolved]
  - Acute kidney injury [Recovered/Resolved]
  - Haematoma [Recovered/Resolved]
  - Hypothyroidism [Recovered/Resolved]
  - Fall [Unknown]
  - C-reactive protein increased [Recovered/Resolved]
  - Diarrhoea [Recovered/Resolved]
  - Oedema peripheral [Recovered/Resolved]
  - C-reactive protein increased [Recovered/Resolved]
  - Decreased appetite [Not Recovered/Not Resolved]

NARRATIVE: CASE EVENT DATE: 20210717
